FAERS Safety Report 7384664-9 (Version None)
Quarter: 2011Q1

REPORT INFORMATION
  Report Type: 
  Country: None (occurrence: None)
  Receive Date: 20110330
  Receipt Date: 20110316
  Transmission Date: 20110831
  Serious: Yes (Other)
  Sender: FDA-Public Use
  Company Number: PHHY2011BR22486

PATIENT
  Sex: Female

DRUGS (7)
  1. DIOVAN [Suspect]
     Dosage: 320 MG
  2. ATENOLOL [Concomitant]
     Dosage: 50 MG, UNK
  3. FOLIC ACID [Concomitant]
     Dosage: 5 MG, UNK
  4. SIMVASTATIN [Concomitant]
     Dosage: 20 MG, UNK
  5. LASIX [Concomitant]
     Dosage: 40 MG, UNK
  6. METHYLDOPA [Concomitant]
     Dosage: 500 MG, UNK
  7. AAS [Concomitant]

REACTIONS (1)
  - DRUG DEPENDENCE [None]
